FAERS Safety Report 22116321 (Version 1)
Quarter: 2023Q1

REPORT INFORMATION
  Report Type: Report from Study
  Country: US (occurrence: US)
  Receive Date: 20230320
  Receipt Date: 20230320
  Transmission Date: 20230418
  Serious: No
  Sender: FDA-Public Use
  Company Number: US-BIOVITRUM-2023US00558

PATIENT
  Age: 0 Year
  Sex: Male

DRUGS (2)
  1. SYNAGIS [Suspect]
     Active Substance: PALIVIZUMAB
     Indication: Antiviral prophylaxis
     Dosage: 100MG/1ML
     Route: 030
  2. GAS RELIEF [Concomitant]
     Active Substance: DIMETHICONE
     Indication: Product used for unknown indication
     Route: 065

REACTIONS (9)
  - Respiratory symptom [Unknown]
  - Adverse reaction [Unknown]
  - Product dose omission issue [Unknown]
  - Asthma [Unknown]
  - Illness [Unknown]
  - Cough [Unknown]
  - Wheezing [Unknown]
  - Rhinorrhoea [Unknown]
  - Drug effect less than expected [Unknown]
